FAERS Safety Report 16464557 (Version 1)
Quarter: 2019Q2

REPORT INFORMATION
  Report Type: Spontaneous
  Country: MY (occurrence: MY)
  Receive Date: 20190621
  Receipt Date: 20190621
  Transmission Date: 20190711
  Serious: Yes (Other)
  Sender: FDA-Public Use
  Company Number: PHHY2019MY143174

PATIENT
  Age: 49 Year
  Sex: Male

DRUGS (1)
  1. CEFAZOLIN SANDOZ [Suspect]
     Active Substance: CEFAZOLIN
     Indication: DEVICE RELATED INFECTION
     Dosage: 1 G, QD
     Route: 042

REACTIONS (1)
  - Toxic epidermal necrolysis [Not Recovered/Not Resolved]
